FAERS Safety Report 8777221 (Version 3)
Quarter: 2012Q4

REPORT INFORMATION
  Report Type: 
  Country: JP (occurrence: JP)
  Receive Date: 20120911
  Receipt Date: 20121127
  Transmission Date: 20130627
  Serious: Yes (Other)
  Sender: FDA-Public Use
  Company Number: JP-AMGEN-JPNSP2012056817

PATIENT
  Age: 35 Year
  Sex: Female
  Weight: 46.9 kg

DRUGS (2)
  1. ENBREL [Suspect]
     Indication: RHEUMATOID ARTHRITIS
     Dosage: 25 mg, weekly
     Route: 058
     Dates: start: 20090508, end: 20091110
  2. HYALEIN [Concomitant]
     Indication: DRY EYE
     Dosage: 40 ml (5 mL x 8 times), monthly
     Route: 047

REACTIONS (1)
  - Abortion [Recovered/Resolved]
